FAERS Safety Report 24945933 (Version 1)
Quarter: 2025Q1

REPORT INFORMATION
  Report Type: Spontaneous
  Country: US (occurrence: US)
  Receive Date: 20250209
  Receipt Date: 20250209
  Transmission Date: 20250409
  Serious: No
  Sender: ROCHE
  Company Number: US-ROCHE-10000201570

PATIENT
  Age: 27 Year
  Sex: Male

DRUGS (1)
  1. NUTROPIN [Suspect]
     Active Substance: SOMATROPIN
     Indication: Hypopituitarism
     Dosage: SIZE/STRENGTH: 10MG/2ML
     Route: 058

REACTIONS (1)
  - Diarrhoea [Unknown]
